FAERS Safety Report 9321400 (Version 1)
Quarter: 2013Q2

REPORT INFORMATION
  Report Type: Spontaneous
  Country: FI (occurrence: None)
  Receive Date: 20130528
  Receipt Date: 20130528
  Transmission Date: 20140414
  Serious: Yes (Death, Other)
  Sender: FDA-Public Use
  Company Number: 2013P1006163

PATIENT
  Age: 20 Year
  Sex: Female
  Weight: 56 kg

DRUGS (3)
  1. FENTANYL [Suspect]
     Indication: LABOUR PAIN
     Dosage: 20 UG; INTH
     Route: 037
  2. FENTANYL [Suspect]
     Indication: LABOUR PAIN
     Dosage: 20 UG; INTH
     Route: 037
  3. ROPIVACAINE [Suspect]

REACTIONS (5)
  - Loss of consciousness [None]
  - Hypotension [None]
  - Caesarean section [None]
  - Anaesthetic complication [None]
  - Wrong technique in drug usage process [None]
